FAERS Safety Report 6712655-7 (Version None)
Quarter: 2010Q2

REPORT INFORMATION
  Report Type: 
  Country: None (occurrence: None)
  Receive Date: 20100506
  Receipt Date: 20100423
  Transmission Date: 20101027
  Serious: Yes (Life-Threatening)
  Sender: FDA-Public Use
  Company Number: JP-BAYER-201011969BYL

PATIENT
  Age: 61 Year
  Sex: Female
  Weight: 51 kg

DRUGS (10)
  1. NEXAVAR [Suspect]
     Indication: RENAL CANCER
     Dosage: UNIT DOSE: 200 MG
     Route: 048
     Dates: start: 20100329
  2. NEXAVAR [Suspect]
     Dosage: UNIT DOSE: 200 MG
     Route: 048
     Dates: start: 20100412, end: 20100413
  3. SHIKICHOL [Suspect]
     Indication: HEPATIC FUNCTION ABNORMAL
     Dosage: UNIT DOSE: 100 MG
     Route: 048
     Dates: start: 20070622
  4. ZOLOFT [Suspect]
     Indication: DEPRESSION
     Dosage: UNIT DOSE: 25 MG
     Route: 048
     Dates: start: 20070720
  5. MOBIC [Suspect]
     Indication: DRUG USE FOR UNKNOWN INDICATION
     Dosage: UNIT DOSE: 10 MG
     Route: 048
     Dates: start: 20090427
  6. CANDESARTAN CILEXETIL [Suspect]
     Indication: HYPERTENSION
     Dosage: UNIT DOSE: 4 MG
     Route: 048
     Dates: start: 20100427
  7. TAGAMET [Suspect]
     Indication: DRUG USE FOR UNKNOWN INDICATION
     Dosage: UNIT DOSE: 200 MG
     Route: 048
     Dates: start: 20100427
  8. SUMIFERON DS [Suspect]
     Indication: DRUG USE FOR UNKNOWN INDICATION
     Dosage: UNIT DOSE: 6 MIU
     Route: 042
     Dates: start: 20070228
  9. ADALAT CC [Suspect]
     Indication: HYPERTENSION
     Dosage: UNIT DOSE: 20 MG
     Route: 048
     Dates: start: 20100406
  10. AMLODIN OD [Suspect]
     Indication: HYPERTENSION
     Dosage: UNIT DOSE: 5 MG
     Route: 048
     Dates: start: 20070228

REACTIONS (4)
  - DISSEMINATED INTRAVASCULAR COAGULATION [None]
  - DRUG ERUPTION [None]
  - HEPATIC FUNCTION ABNORMAL [None]
  - PANCREATITIS ACUTE [None]
